FAERS Safety Report 5392507-8 (Version None)
Quarter: 2007Q3

REPORT INFORMATION
  Report Type: 
  Country: None (occurrence: None)
  Receive Date: 20070720
  Receipt Date: 20070710
  Transmission Date: 20080115
  Serious: Yes (Other)
  Sender: FDA-Public Use
  Company Number: US-SANOFI-SYNTHELABO-A03200603672

PATIENT
  Sex: Female
  Weight: 72.6 kg

DRUGS (14)
  1. INDERAL [Concomitant]
     Dosage: UNK
     Route: 048
  2. ESKALITH [Concomitant]
     Route: 048
  3. LEVOTHYROXINE SODIUM [Concomitant]
     Dosage: UNK
     Route: 048
  4. BENZTROPINE [Concomitant]
     Dosage: UNK
     Route: 048
  5. XENICAL [Concomitant]
     Dosage: UNK
     Route: 048
  6. AMBIEN [Suspect]
     Indication: DRUG USE FOR UNKNOWN INDICATION
     Route: 048
     Dates: start: 20010101, end: 20050101
  7. AMBIEN [Suspect]
     Route: 048
     Dates: start: 20051101, end: 20051101
  8. AMBIEN [Suspect]
     Route: 048
     Dates: start: 20060101
  9. ZYPREXA [Concomitant]
     Route: 048
     Dates: start: 20030101
  10. SERZONE [Concomitant]
     Route: 048
     Dates: start: 19970101
  11. HALCION [Concomitant]
     Dosage: UNK
     Route: 048
  12. DIAZEPAM [Concomitant]
     Dosage: UNK
     Route: 048
  13. XANAX [Concomitant]
     Route: 048
  14. PHENTERMINE HYDROCHLORIDE [Concomitant]
     Dosage: UNK
     Route: 048

REACTIONS (44)
  - ALOPECIA [None]
  - AMNESIA [None]
  - ANOREXIA [None]
  - ANXIETY [None]
  - BLEPHAROSPASM [None]
  - BLOOD MAGNESIUM DECREASED [None]
  - BLOOD POTASSIUM DECREASED [None]
  - CONDITION AGGRAVATED [None]
  - CONFUSIONAL STATE [None]
  - DEPENDENCE [None]
  - DEPRESSION [None]
  - DRUG INEFFECTIVE [None]
  - DYSPEPSIA [None]
  - EATING DISORDER [None]
  - FACET JOINT SYNDROME [None]
  - FALL [None]
  - GASTRIC HYPOMOTILITY [None]
  - HALLUCINATION, AUDITORY [None]
  - HAND FRACTURE [None]
  - HEAD DISCOMFORT [None]
  - HEAD INJURY [None]
  - HEADACHE [None]
  - HYPOTHYROIDISM [None]
  - ILL-DEFINED DISORDER [None]
  - JOINT CREPITATION [None]
  - JOINT RANGE OF MOTION DECREASED [None]
  - MEMORY IMPAIRMENT [None]
  - MENTAL DISORDER [None]
  - MUSCULOSKELETAL PAIN [None]
  - NAUSEA [None]
  - NECK PAIN [None]
  - PANCREATITIS [None]
  - PARAESTHESIA [None]
  - PARKINSON'S DISEASE [None]
  - ROAD TRAFFIC ACCIDENT [None]
  - ROTATOR CUFF SYNDROME [None]
  - SOMNAMBULISM [None]
  - SPINAL FRACTURE [None]
  - SUICIDAL IDEATION [None]
  - TENDONITIS [None]
  - THERAPEUTIC RESPONSE UNEXPECTED [None]
  - VOMITING [None]
  - WEIGHT DECREASED [None]
  - WEIGHT INCREASED [None]
